FAERS Safety Report 5417369-1 (Version None)
Quarter: 2007Q3

REPORT INFORMATION
  Report Type: 
  Country: None (occurrence: None)
  Receive Date: 20070814
  Receipt Date: 20070731
  Transmission Date: 20080115
  Serious: Yes (Death)
  Sender: FDA-Public Use
  Company Number: 2007S1000309

PATIENT
  Sex: Female

DRUGS (3)
  1. CUBICIN [Suspect]
     Indication: BACTERAEMIA
     Dosage: 8 MG/KG; IV
     Route: 042
     Dates: start: 20070701, end: 20070701
  2. CUBICIN [Suspect]
     Indication: ENDOCARDITIS BACTERIAL
     Dosage: 8 MG/KG; IV
     Route: 042
     Dates: start: 20070701, end: 20070701
  3. VANCOMYCIN [Concomitant]

REACTIONS (2)
  - DISEASE PROGRESSION [None]
  - ENDOCARDITIS [None]
